FAERS Safety Report 12760980 (Version 1)
Quarter: 2016Q3

REPORT INFORMATION
  Report Type: Report from Study
  Country: ES (occurrence: ES)
  Receive Date: 20160919
  Receipt Date: 20160919
  Transmission Date: 20161109
  Serious: Yes (Other)
  Sender: FDA-Public Use
  Company Number: ES-BAXTER-2016BAX047023

PATIENT
  Age: 75 Year

DRUGS (24)
  1. GENOXAL [Suspect]
     Active Substance: CYCLOPHOSPHAMIDE
     Indication: CHRONIC LYMPHOCYTIC LEUKAEMIA
     Dosage: TREATMENT VISIT 1, COMPLETE DOSE
     Route: 065
     Dates: start: 20110418, end: 20110422
  2. RITUXIMAB [Suspect]
     Active Substance: RITUXIMAB
     Indication: CHRONIC LYMPHOCYTIC LEUKAEMIA
     Dosage: TREATMENT VISIT 1, COMPLETE DOSE
     Route: 065
     Dates: start: 20110418, end: 20110422
  3. RITUXIMAB [Suspect]
     Active Substance: RITUXIMAB
     Dosage: TREATMENT VISIT 5, COMPLETE DOSE
     Route: 065
     Dates: start: 20110912, end: 20110916
  4. VINCRISTINE [Suspect]
     Active Substance: VINCRISTINE
     Dosage: TREATMENT VISIT 2, COMPLETE DOSE
     Route: 065
     Dates: start: 20110510, end: 20110514
  5. VINCRISTINE [Suspect]
     Active Substance: VINCRISTINE
     Dosage: TREATMENT VISIT 6, COMPLETE DOSE
     Route: 065
     Dates: start: 20111003, end: 20111007
  6. PREDNISONE. [Suspect]
     Active Substance: PREDNISONE
     Dosage: TREATMENT VISIT 2, COMPLETE DOSE
     Route: 065
     Dates: start: 20110510, end: 20110514
  7. RITUXIMAB [Suspect]
     Active Substance: RITUXIMAB
     Dosage: TREATMENT VISIT 6, COMPLETE DOSE
     Route: 065
     Dates: start: 20111003, end: 20111007
  8. PREDNISONE. [Suspect]
     Active Substance: PREDNISONE
     Dosage: TREATMENT VISIT 3, COMPLETE DOSE
     Route: 065
     Dates: start: 20110603, end: 20110607
  9. GENOXAL [Suspect]
     Active Substance: CYCLOPHOSPHAMIDE
     Dosage: TREATMENT VISIT 5, COMPLETE DOSE
     Route: 065
     Dates: start: 20110912, end: 20110916
  10. PREDNISONE. [Suspect]
     Active Substance: PREDNISONE
     Dosage: TREATMENT VISIT 6, COMPLETE DOSE
     Route: 065
     Dates: start: 20111003, end: 20111007
  11. RITUXIMAB [Suspect]
     Active Substance: RITUXIMAB
     Dosage: TREATMENT VISIT 2, COMPLETE DOSE
     Route: 065
     Dates: start: 20110510, end: 20110514
  12. VINCRISTINE [Suspect]
     Active Substance: VINCRISTINE
     Indication: CHRONIC LYMPHOCYTIC LEUKAEMIA
     Dosage: TREATMENT VISIT 1, COMPLETE DOSE
     Route: 065
     Dates: start: 20110418, end: 20110422
  13. VINCRISTINE [Suspect]
     Active Substance: VINCRISTINE
     Dosage: TREATMENT VISIT 4, COMPLETE DOSE
     Route: 065
     Dates: start: 20110627, end: 20110701
  14. VINCRISTINE [Suspect]
     Active Substance: VINCRISTINE
     Dosage: TREATMENT VISIT 5, COMPLETE DOSE
     Route: 065
     Dates: start: 20110912, end: 20110916
  15. GENOXAL [Suspect]
     Active Substance: CYCLOPHOSPHAMIDE
     Dosage: TREATMENT VISIT 3, COMPLETE DOSE
     Route: 065
     Dates: start: 20110603, end: 20110607
  16. VINCRISTINE [Suspect]
     Active Substance: VINCRISTINE
     Dosage: TREATMENT VISIT 3, COMPLETE DOSE
     Route: 065
     Dates: start: 20110603, end: 20110607
  17. GENOXAL [Suspect]
     Active Substance: CYCLOPHOSPHAMIDE
     Dosage: TREATMENT VISIT 2, COMPLETE DOSE
     Route: 065
     Dates: start: 20110510, end: 20110514
  18. RITUXIMAB [Suspect]
     Active Substance: RITUXIMAB
     Dosage: TREATMENT VISIT 4, COMPLETE DOSE
     Route: 065
     Dates: start: 20110627, end: 20110701
  19. PREDNISONE. [Suspect]
     Active Substance: PREDNISONE
     Dosage: TREATMENT VISIT 5, COMPLETE DOSE
     Route: 065
     Dates: start: 20110912, end: 20110916
  20. RITUXIMAB [Suspect]
     Active Substance: RITUXIMAB
     Dosage: TREATMENT VISIT 3, COMPLETE DOSE
     Route: 065
     Dates: start: 20110603, end: 20110607
  21. PREDNISONE. [Suspect]
     Active Substance: PREDNISONE
     Indication: CHRONIC LYMPHOCYTIC LEUKAEMIA
     Dosage: TREATMENT VISIT 1, COMPLETE DOSE
     Route: 065
     Dates: start: 20110418, end: 20110422
  22. PREDNISONE. [Suspect]
     Active Substance: PREDNISONE
     Dosage: TREATMENT VISIT 4, COMPLETE DOSE
     Route: 065
     Dates: start: 20110627, end: 20110701
  23. GENOXAL [Suspect]
     Active Substance: CYCLOPHOSPHAMIDE
     Dosage: TREATMENT VISIT 4, COMPLETE DOSE
     Route: 065
     Dates: start: 20110627, end: 20110701
  24. GENOXAL [Suspect]
     Active Substance: CYCLOPHOSPHAMIDE
     Dosage: TREATMENT VISIT 6, COMPLETE DOSE
     Route: 065
     Dates: start: 20111003, end: 20111007

REACTIONS (3)
  - Hypogammaglobulinaemia [Recovered/Resolved]
  - Protein total decreased [Recovered/Resolved]
  - Vitamin B12 increased [Recovered/Resolved]

NARRATIVE: CASE EVENT DATE: 20110527
